FAERS Safety Report 16544802 (Version 1)
Quarter: 2019Q3

REPORT INFORMATION
  Report Type: Spontaneous
  Country: US (occurrence: US)
  Receive Date: 20190708
  Receipt Date: 20190708
  Transmission Date: 20191004
  Serious: Yes (Other)
  Sender: FDA-Public Use
  Company Number: None

PATIENT
  Age: 72 Year
  Sex: Female
  Weight: 52.2 kg

DRUGS (6)
  1. CLONAZEPAM. [Concomitant]
     Active Substance: CLONAZEPAM
  2. NABUMETONE 500MG 2 TABS DAILY - FIBROMYALGIA - NDC #68462-0358-01 [Suspect]
     Active Substance: NABUMETONE
     Indication: ARTHRALGIA
     Dosage: ?          QUANTITY:95 TABLET(S);?
     Route: 048
     Dates: start: 20190531, end: 20190619
  3. ATENOLOL. [Concomitant]
     Active Substance: ATENOLOL
  4. ATENOLOL. [Concomitant]
     Active Substance: ATENOLOL
  5. AMLODIPINE BESYLATE. [Concomitant]
     Active Substance: AMLODIPINE BESYLATE
  6. SYNTHROID [Concomitant]
     Active Substance: LEVOTHYROXINE SODIUM

REACTIONS (2)
  - Product substitution issue [None]
  - Drug ineffective [None]

NARRATIVE: CASE EVENT DATE: 20190607
